FAERS Safety Report 8008002-3 (Version None)
Quarter: 2011Q4

REPORT INFORMATION
  Report Type: 
  Country: None (occurrence: None)
  Receive Date: 20111227
  Receipt Date: 20111213
  Transmission Date: 20120403
  Serious: Yes (Other)
  Sender: FDA-Public Use
  Company Number: PHHY2011JP108681

PATIENT
  Age: 11 Year
  Sex: Male

DRUGS (11)
  1. CLADRIBINE [Suspect]
     Dosage: 5 MG/M2, UNK
     Route: 042
  2. PREDNISOLONE [Concomitant]
  3. DOXORUBICIN HCL [Concomitant]
  4. CLADRIBINE [Suspect]
     Indication: XANTHOGRANULOMA
     Dosage: 3 MG/M2, UNK
     Route: 042
  5. CYCLOSPORINE [Suspect]
     Indication: XANTHOGRANULOMA
  6. FLUDARABINE PHOSPHATE [Concomitant]
     Dosage: 180 MG/M2, UNK
  7. VINCRISTINE [Concomitant]
  8. CYCLOPHOSPHAMIDE [Concomitant]
  9. MELPHALAN HYDROCHLORIDE [Concomitant]
     Dosage: 210 MG/M2, UNK
  10. ETOPOSIDE [Concomitant]
     Dosage: 300 MG/M2, UNK
  11. TACROLIMUS [Concomitant]
     Indication: PROPHYLAXIS AGAINST GRAFT VERSUS HOST DISEASE

REACTIONS (12)
  - LUNG DISORDER [None]
  - XANTHOGRANULOMA [None]
  - ANAEMIA [None]
  - HERPES ZOSTER DISSEMINATED [None]
  - DISEASE RECURRENCE [None]
  - NEUTROPENIA [None]
  - FEBRILE NEUTROPENIA [None]
  - RENAL FAILURE [None]
  - BONE MARROW FAILURE [None]
  - NEUTROPHIL COUNT DECREASED [None]
  - THERAPEUTIC RESPONSE DECREASED [None]
  - THROMBOCYTOPENIA [None]
